FAERS Safety Report 20902026 (Version 3)
Quarter: 2022Q3

REPORT INFORMATION
  Report Type: Spontaneous
  Country: US (occurrence: US)
  Receive Date: 20220601
  Receipt Date: 20220711
  Transmission Date: 20221027
  Serious: No
  Sender: FDA-Public Use
  Company Number: US-PFIZER INC-202200778834

PATIENT
  Age: 73 Year
  Sex: Female
  Weight: 60.771 kg

DRUGS (6)
  1. PAXLOVID [Suspect]
     Active Substance: NIRMATRELVIR\RITONAVIR
     Indication: COVID-19 treatment
     Dosage: UNK, 2X/DAY
     Dates: start: 20220514, end: 20220518
  2. PAXLOVID [Suspect]
     Active Substance: NIRMATRELVIR\RITONAVIR
     Dosage: 10 MG
     Dates: start: 20220515, end: 20220519
  3. ROPINIROLE [Concomitant]
     Active Substance: ROPINIROLE
     Dosage: UNK, DAILY
     Dates: start: 2017
  4. OMEPRAZOLE [Concomitant]
     Active Substance: OMEPRAZOLE
     Dosage: UNK, DAILY
     Dates: start: 2017
  5. MELATONIN [Concomitant]
     Active Substance: MELATONIN
     Dosage: UNK, DAILY
     Dates: start: 2022
  6. TRAZODONE [Concomitant]
     Active Substance: TRAZODONE HYDROCHLORIDE
     Dosage: UNK, DAILY
     Dates: start: 2017

REACTIONS (2)
  - COVID-19 [Recovered/Resolved]
  - Disease recurrence [Recovered/Resolved]

NARRATIVE: CASE EVENT DATE: 20220521
